FAERS Safety Report 13513007 (Version 1)
Quarter: 2017Q2

REPORT INFORMATION
  Report Type: Spontaneous
  Country: US (occurrence: US)
  Receive Date: 20170504
  Receipt Date: 20170504
  Transmission Date: 20170830
  Serious: No
  Sender: FDA-Public Use
  Company Number: US-ABBVIE-16P-163-1637090-00

PATIENT
  Sex: Male

DRUGS (1)
  1. ANDROGEL [Suspect]
     Active Substance: TESTOSTERONE
     Indication: BLOOD TESTOSTERONE DECREASED
     Dosage: 0.5 /1 DAY
     Route: 061
     Dates: start: 201605, end: 20160520

REACTIONS (4)
  - Heart rate increased [Recovered/Resolved]
  - Hostility [Recovered/Resolved]
  - Feeling jittery [Recovered/Resolved]
  - Belligerence [Recovered/Resolved]

NARRATIVE: CASE EVENT DATE: 201605
